FAERS Safety Report 8444754-6 (Version None)
Quarter: 2012Q2

REPORT INFORMATION
  Report Type: 
  Country: None (occurrence: None)
  Receive Date: 20120611
  Receipt Date: 20120526
  Transmission Date: 20120825
  Serious: Yes (Death, Hospitalization)
  Sender: FDA-Public Use
  Company Number: 2012AP001628

PATIENT
  Age: 37 Year
  Sex: Female

DRUGS (6)
  1. DIVALPROEX SODIUM [Suspect]
     Indication: GRAND MAL CONVULSION
     Dosage: 500 MG;BID
  2. LORAZEPAM [Concomitant]
  3. VALPROATE SODIUM [Concomitant]
  4. DIAZEPAM [Concomitant]
  5. PHENYTOIN [Concomitant]
  6. LEVETIRACETAM [Concomitant]

REACTIONS (8)
  - REFUSAL OF TREATMENT BY PATIENT [None]
  - ACUTE HEPATIC FAILURE [None]
  - DELUSION [None]
  - GRAND MAL CONVULSION [None]
  - HEPATOTOXICITY [None]
  - BRAIN OEDEMA [None]
  - BRAIN HERNIATION [None]
  - AGITATION [None]
